FAERS Safety Report 20954098 (Version 4)
Quarter: 2022Q3

REPORT INFORMATION
  Report Type: Spontaneous
  Country: US (occurrence: US)
  Receive Date: 20220614
  Receipt Date: 20220707
  Transmission Date: 20221027
  Serious: No
  Sender: FDA-Public Use
  Company Number: US-NOVARTISTESTPH-NVSC2022US135752

PATIENT

DRUGS (2)
  1. PATADAY [Suspect]
     Active Substance: OLOPATADINE HYDROCHLORIDE
     Indication: Feeling of relaxation
     Dosage: UNK (ONCE DAILY RELIEF)
     Route: 047
  2. PATADAY [Suspect]
     Active Substance: OLOPATADINE HYDROCHLORIDE
     Dosage: UNK
     Route: 047

REACTIONS (2)
  - Eye discharge [Recovered/Resolved]
  - Ocular discomfort [Recovered/Resolved]
